FAERS Safety Report 10447252 (Version 1)
Quarter: 2014Q3

REPORT INFORMATION
  Report Type: Spontaneous
  Country: DE (occurrence: DE)
  Receive Date: 20140911
  Receipt Date: 20140911
  Transmission Date: 20150326
  Serious: Yes (Hospitalization)
  Sender: FDA-Public Use
  Company Number: DE-MYLANLABS-2014M1003340

PATIENT

DRUGS (1)
  1. LAMOTRIGIN DURA 100MG [Suspect]
     Active Substance: LAMOTRIGINE
     Dosage: 1200 MG, TOTAL (12 TABLETS AT ONCE)
     Route: 048
     Dates: start: 20140829, end: 20140829

REACTIONS (5)
  - Sopor [Unknown]
  - Mydriasis [Unknown]
  - Nystagmus [Unknown]
  - Hypotension [Unknown]
  - Vomiting [Unknown]

NARRATIVE: CASE EVENT DATE: 20140829
